FAERS Safety Report 8067328-8 (Version None)
Quarter: 2012Q1

REPORT INFORMATION
  Report Type: 
  Country: None (occurrence: None)
  Receive Date: 20120124
  Receipt Date: 20120119
  Transmission Date: 20120608
  Serious: Yes (Hospitalization)
  Sender: FDA-Public Use
  Company Number: JP-GLAXOSMITHKLINE-B0774257A

PATIENT
  Sex: Female

DRUGS (12)
  1. LAMICTAL [Suspect]
     Dosage: 50MG PER DAY
     Route: 048
     Dates: start: 20111201, end: 20111208
  2. REMERON [Concomitant]
     Route: 048
  3. ARTANE [Concomitant]
     Indication: TREMOR
     Dosage: 4MG PER DAY
     Route: 048
  4. LAMICTAL [Suspect]
     Dosage: 25MG PER DAY
     Route: 048
     Dates: start: 20111117, end: 20111130
  5. CYMBALTA [Concomitant]
     Route: 048
  6. ABILIFY [Concomitant]
     Indication: BIPOLAR I DISORDER
     Dosage: 12MG PER DAY
     Route: 048
  7. LIOTHYRONINE SODIUM [Concomitant]
     Indication: HYPOTHYROIDISM
     Dosage: 25MCG PER DAY
     Route: 048
  8. LAMICTAL [Suspect]
     Indication: BIPOLAR I DISORDER
     Route: 048
     Dates: start: 20110901
  9. LAMICTAL [Suspect]
     Dosage: 75MG PER DAY
     Route: 048
     Dates: start: 20111209, end: 20111221
  10. TRIAZOLAM [Concomitant]
     Indication: INSOMNIA
     Dosage: .25MG PER DAY
     Route: 048
  11. LAMICTAL [Suspect]
     Dosage: 100MG PER DAY
     Route: 048
     Dates: start: 20111222, end: 20111229
  12. LITHIUM CARBONATE [Concomitant]
     Indication: BIPOLAR I DISORDER
     Dosage: 400MG PER DAY
     Route: 048

REACTIONS (3)
  - RASH [None]
  - DEHYDRATION [None]
  - STEVENS-JOHNSON SYNDROME [None]
